FAERS Safety Report 4853199-7 (Version None)
Quarter: 2005Q4

REPORT INFORMATION
  Report Type: 
  Country: None (occurrence: None)
  Receive Date: 20051214
  Receipt Date: 20010305
  Transmission Date: 20060501
  Serious: Yes (Hospitalization)
  Sender: FDA-Public Use
  Company Number: AU-ROCHE-255853

PATIENT
  Age: 55 Year
  Sex: Male
  Weight: 61.3 kg

DRUGS (9)
  1. SAQUINAVIR [Suspect]
     Indication: DRUG USE FOR UNKNOWN INDICATION
     Route: 065
     Dates: start: 19990405
  2. PEG-INTERFERON ALFA 2A (RO 25-8310) [Suspect]
     Route: 058
     Dates: start: 20000707
  3. RIBAVIRIN [Suspect]
     Dosage: WITH FOOD.
     Route: 048
     Dates: start: 20000707
  4. BACTRIM DS [Suspect]
     Indication: DRUG USE FOR UNKNOWN INDICATION
     Route: 065
     Dates: start: 20000707
  5. DIDANOSINE [Suspect]
     Indication: DRUG USE FOR UNKNOWN INDICATION
     Route: 065
     Dates: start: 19980706
  6. RITONAVIR [Suspect]
     Indication: DRUG USE FOR UNKNOWN INDICATION
     Route: 065
     Dates: start: 19990405
  7. IMODIUM [Concomitant]
     Dates: start: 20000707
  8. ANTIHEMOPHILIC FACTOR (HUMAN) [Concomitant]
     Dates: start: 20000707
  9. PHENERGAN [Concomitant]
     Dates: start: 20001221

REACTIONS (1)
  - DUODENAL ULCER [None]
